FAERS Safety Report 5238726-2 (Version None)
Quarter: 2007Q1

REPORT INFORMATION
  Report Type: 
  Country: None (occurrence: None)
  Receive Date: 20070215
  Receipt Date: 20070206
  Transmission Date: 20070707
  Serious: Yes (Disabling)
  Sender: FDA-Public Use
  Company Number: US-SANOFI-SYNTHELABO-A03200701096

PATIENT
  Sex: Female
  Weight: 44.9 kg

DRUGS (3)
  1. AMBIEN [Suspect]
     Indication: INSOMNIA
     Route: 048
     Dates: end: 20060101
  2. COLCHICINE [Concomitant]
     Dosage: UNK
     Route: 048
  3. AMBIEN [Suspect]
     Dosage: 12.5 MG TABLET CUT INTO 4 OR 5 PIECES
     Route: 048
     Dates: start: 20060101, end: 20070101

REACTIONS (9)
  - FATIGUE [None]
  - LIMB DISCOMFORT [None]
  - MUSCLE DISORDER [None]
  - MUSCLE RIGIDITY [None]
  - MUSCLE SPASMS [None]
  - MUSCULOSKELETAL PAIN [None]
  - MUSCULOSKELETAL STIFFNESS [None]
  - MYALGIA [None]
  - NECK PAIN [None]
